FAERS Safety Report 13271598 (Version 1)
Quarter: 2017Q1

REPORT INFORMATION
  Report Type: Spontaneous
  Country: US (occurrence: US)
  Receive Date: 20170227
  Receipt Date: 20170227
  Transmission Date: 20170428
  Serious: No
  Sender: FDA-Public Use
  Company Number: ALCN2017US001617

PATIENT
  Age: 77 Year
  Sex: Female

DRUGS (1)
  1. TRAVATAN Z [Suspect]
     Active Substance: TRAVOPROST
     Indication: INTRAOCULAR PRESSURE INCREASED
     Dosage: UNK (EVERY OTHER DAY)
     Route: 047
     Dates: start: 2016, end: 201608

REACTIONS (4)
  - Lacrimation increased [Recovered/Resolved]
  - Dysmorphism [Recovered/Resolved]
  - Dark circles under eyes [Recovered/Resolved]
  - Gastrointestinal disorder [Recovering/Resolving]

NARRATIVE: CASE EVENT DATE: 2016
